FAERS Safety Report 5286128-5 (Version None)
Quarter: 2007Q2

REPORT INFORMATION
  Report Type: 
  Country: None (occurrence: None)
  Receive Date: 20070404
  Receipt Date: 20070323
  Transmission Date: 20071010
  Serious: Yes (Other)
  Sender: FDA-Public Use
  Company Number: GR-AVENTIS-200712799GDDC

PATIENT
  Age: 52 Year
  Sex: Male

DRUGS (3)
  1. FLUOROURACIL [Suspect]
     Indication: COLON CANCER
     Dosage: DOSE: 400 MG/M2 BOLUS ON DAYS 1, 2 FOLLOWED BY 600 MG/M2 CONTINUOUS INFUSION FOR 22 HOURS
     Route: 042
  2. LEUCOVORIN CALCIUM [Suspect]
     Dosage: DOSE: 200 MG/M2 ON DAY ONE AND TWO
     Route: 042
  3. L-OHP [Suspect]
     Dosage: DOSE: 85 MG/M2 ON DAY ONE
     Route: 042

REACTIONS (1)
  - HAEMOLYTIC URAEMIC SYNDROME [None]
